FAERS Safety Report 20526610 (Version 4)
Quarter: 2022Q2

REPORT INFORMATION
  Report Type: Spontaneous
  Country: US (occurrence: None)
  Receive Date: 20220228
  Receipt Date: 20220401
  Transmission Date: 20220720
  Serious: Yes (Death)
  Sender: FDA-Public Use
  Company Number: 2022A085608

PATIENT
  Age: 74 Year
  Sex: Female
  Weight: 91.2 kg

DRUGS (13)
  1. SAPHNELO [Suspect]
     Active Substance: ANIFROLUMAB-FNIA
     Indication: Systemic lupus erythematosus
     Dosage: 300.0MG UNKNOWN
     Route: 042
     Dates: start: 20211120, end: 20211218
  2. SAPHNELO [Suspect]
     Active Substance: ANIFROLUMAB-FNIA
     Indication: Systemic lupus erythematosus
     Dosage: 300.0MG UNKNOWN
     Route: 042
  3. METOPROLOL [Suspect]
     Active Substance: METOPROLOL
     Route: 048
  4. PLAQUENIL [Concomitant]
     Active Substance: HYDROXYCHLOROQUINE SULFATE
     Route: 065
  5. BELIMUMAB [Concomitant]
     Active Substance: BELIMUMAB
     Route: 065
  6. PREDNISONE [Concomitant]
     Active Substance: PREDNISONE
     Route: 065
     Dates: start: 2019
  7. DEFLAZACORT [Concomitant]
     Active Substance: DEFLAZACORT
     Route: 065
     Dates: start: 2019
  8. LEVOTHYROXINE SODIUM [Concomitant]
     Active Substance: LEVOTHYROXINE SODIUM
     Route: 065
  9. TRAZODONE [Concomitant]
     Active Substance: TRAZODONE HYDROCHLORIDE
     Route: 065
  10. VITAMIN D [Concomitant]
     Active Substance: VITAMIN D NOS
     Route: 065
  11. TRAMADOL [Concomitant]
     Active Substance: TRAMADOL
     Route: 065
  12. GABAPENTIN [Concomitant]
     Active Substance: GABAPENTIN
     Route: 065
  13. MYCOPHENOLIC ACID [Concomitant]
     Active Substance: MYCOPHENOLIC ACID

REACTIONS (3)
  - COVID-19 [Fatal]
  - Rash [Recovered/Resolved]
  - Arthralgia [Recovered/Resolved]
